FAERS Safety Report 19603683 (Version 2)
Quarter: 2022Q1

REPORT INFORMATION
  Report Type: Spontaneous
  Country: PL (occurrence: PL)
  Receive Date: 20210723
  Receipt Date: 20220119
  Transmission Date: 20220423
  Serious: Yes (Disabling)
  Sender: FDA-Public Use
  Company Number: PL-MYLANLABS-2021M1006410

PATIENT
  Age: 41 Year
  Sex: Female

DRUGS (9)
  1. QUETIAPINE [Suspect]
     Active Substance: QUETIAPINE
     Indication: Insomnia
     Dosage: 50 MILLIGRAM
  2. ZOLPIDEM [Suspect]
     Active Substance: ZOLPIDEM TARTRATE
     Indication: Product used for unknown indication
     Dosage: UNK
  3. ESTAZOLAM [Suspect]
     Active Substance: ESTAZOLAM
     Indication: Product used for unknown indication
     Dosage: UNK
  4. MELATONIN [Concomitant]
     Active Substance: MELATONIN
     Dosage: UNK
  5. HERBALS\HOMEOPATHICS\MELISSA OFFICINALIS [Concomitant]
     Active Substance: HERBALS\HOMEOPATHICS\MELISSA OFFICINALIS
     Dosage: UNK
  6. HUMULUS LUPULUS [Concomitant]
     Active Substance: HOPS
     Dosage: UNK
  7. PASSIFLORA EDULIS [Concomitant]
     Dosage: UNK
  8. MAGNESIUM [Concomitant]
     Active Substance: MAGNESIUM
     Dosage: UNK
  9. VITAMIN B6 [Concomitant]
     Active Substance: PYRIDOXINE HYDROCHLORIDE
     Dosage: UNK

REACTIONS (5)
  - Somnolence [Unknown]
  - Dizziness [Unknown]
  - Off label use [Unknown]
  - Paradoxical drug reaction [Unknown]
  - Intentional product misuse [Unknown]
